FAERS Safety Report 13876541 (Version 1)
Quarter: 2017Q3

REPORT INFORMATION
  Report Type: Spontaneous
  Country: US (occurrence: None)
  Receive Date: 20170814
  Receipt Date: 20170814
  Transmission Date: 20171127
  Serious: No
  Sender: FDA-Public Use
  Company Number: None

PATIENT
  Age: 47 Year
  Sex: Female

DRUGS (1)
  1. BOTOX [Suspect]
     Active Substance: ONABOTULINUMTOXINA
     Indication: MIGRAINE WITHOUT AURA
     Dosage: 200 UNITS, EVERY 90 DAYS, INTRAMUSCULARLY
     Route: 030
     Dates: start: 20170202, end: 20170515

REACTIONS (2)
  - Adverse reaction [None]
  - Migraine [None]

NARRATIVE: CASE EVENT DATE: 20170520
